FAERS Safety Report 15884023 (Version 1)
Quarter: 2019Q1

REPORT INFORMATION
  Report Type: Spontaneous
  Country: US (occurrence: US)
  Receive Date: 20190129
  Receipt Date: 20190129
  Transmission Date: 20190417
  Serious: Yes (Other)
  Sender: FDA-Public Use
  Company Number: None

PATIENT
  Age: 45 Year
  Sex: Female
  Weight: 60.75 kg

DRUGS (2)
  1. HYDROCORTISONE TOPICAL CREAM, RX, GENERIC [Suspect]
     Active Substance: HYDROCORTISONE
     Indication: HAEMORRHOIDS
     Dates: start: 20180928, end: 20180928
  2. HYDROCORTISONE TOPICAL CREAM, RX, GENERIC [Suspect]
     Active Substance: HYDROCORTISONE
     Indication: ANAL FISSURE
     Dates: start: 20180928, end: 20180928

REACTIONS (2)
  - Shock [None]
  - Anal spasm [None]

NARRATIVE: CASE EVENT DATE: 20180928
